FAERS Safety Report 7696304 (Version 3)
Quarter: 2013Q3

REPORT INFORMATION
  Report Type: Report from Study
  Country: CA (occurrence: CA)
  Receive Date: 20101207
  Receipt Date: 20130704
  Transmission Date: 20140515
  Serious: Yes (Other)
  Sender: FDA-Public Use
  Company Number: CA-ROCHE-746042

PATIENT
  Age: 63 Year
  Sex: Male
  Weight: 89.8 kg

DRUGS (11)
  1. ACTEMRA [Suspect]
     Indication: RHEUMATOID ARTHRITIS
     Route: 042
     Dates: start: 20100707, end: 20110708
  2. RISEDRONATE [Concomitant]
     Dosage: DRUG NAME:TEVA-RISEDORNETE
     Route: 065
  3. FOLIC ACID [Concomitant]
  4. TAMSULOSIN [Concomitant]
  5. LEFLUNOMIDE [Concomitant]
  6. PANTOPRAZOLE [Concomitant]
  7. CELEBREX [Concomitant]
  8. TEMAZEPAM [Concomitant]
  9. METHOTREXATE [Concomitant]
  10. VITAMIN A [Concomitant]
  11. B COMPLEX 100 [Concomitant]

REACTIONS (3)
  - Chronic obstructive pulmonary disease [Unknown]
  - Myocardial infarction [Unknown]
  - Drug ineffective [Unknown]
